FAERS Safety Report 8364462-X (Version None)
Quarter: 2012Q2

REPORT INFORMATION
  Report Type: 
  Country: None (occurrence: None)
  Receive Date: 20120514
  Receipt Date: 20120425
  Transmission Date: 20120825
  Serious: Yes (Hospitalization)
  Sender: FDA-Public Use
  Company Number: JPI-P-020487

PATIENT
  Age: 35 Year
  Sex: Female
  Weight: 104.3273 kg

DRUGS (9)
  1. TRAZODONE HCL [Suspect]
     Indication: HEADACHE
     Dosage: INTRAVENOUS
     Route: 042
  2. TRAMADOL HYDROCHLORIDE [Concomitant]
  3. IBUPROFEN [Concomitant]
  4. NASONEX [Concomitant]
  5. MODAFINIL [Concomitant]
  6. XYREM [Suspect]
     Indication: CATAPLEXY
     Dosage: SEE IMAGE
     Route: 048
     Dates: start: 20110107
  7. XYREM [Suspect]
     Indication: CATAPLEXY
     Dosage: SEE IMAGE
     Route: 048
     Dates: start: 20111025
  8. LORATADINE [Concomitant]
  9. ESOMEPRAZOLE MAGNESIUM [Concomitant]

REACTIONS (17)
  - DIARRHOEA [None]
  - PYREXIA [None]
  - MUSCLE STRAIN [None]
  - NECK PAIN [None]
  - PAIN IN EXTREMITY [None]
  - EAR INFECTION [None]
  - HYPOAESTHESIA [None]
  - FLUID RETENTION [None]
  - MUSCLE SPASMS [None]
  - FALL [None]
  - BACK PAIN [None]
  - BREAST PAIN [None]
  - CHEST PAIN [None]
  - NEPHROLITHIASIS [None]
  - NERVE COMPRESSION [None]
  - INFUSION SITE URTICARIA [None]
  - ARTHRALGIA [None]
